FAERS Safety Report 7223672-5 (Version None)
Quarter: 2011Q1

REPORT INFORMATION
  Report Type: 
  Country: None (occurrence: None)
  Receive Date: 20110112
  Receipt Date: 20101008
  Transmission Date: 20110831
  Serious: No
  Sender: FDA-Public Use
  Company Number: US-ALLERGAN-1012863US

PATIENT
  Age: 89 Year
  Sex: Female

DRUGS (4)
  1. COUMADIN [Concomitant]
     Indication: HEART RATE IRREGULAR
  2. SYNTHROID [Concomitant]
     Indication: HYPOTHYROIDISM
  3. RESTASIS [Suspect]
     Indication: DRY EYE
     Dosage: 1 GTT, BID
     Route: 047
     Dates: start: 20100801
  4. SYSTANE ULTRA [Concomitant]
     Indication: DRY EYE
     Dosage: 1 GTT, TID
     Route: 047

REACTIONS (1)
  - EYE PAIN [None]
